FAERS Safety Report 7395376-X (Version None)
Quarter: 2011Q2

REPORT INFORMATION
  Report Type: 
  Country: None (occurrence: None)
  Receive Date: 20110405
  Receipt Date: 20110323
  Transmission Date: 20111010
  Serious: Yes (Death, Hospitalization)
  Sender: FDA-Public Use
  Company Number: DE-ACTELION-A-CH2011-45470

PATIENT
  Sex: Male
  Weight: 77.8 kg

DRUGS (16)
  1. PANTOPRAZOLE [Concomitant]
  2. ACETYLCYSTEINE [Concomitant]
  3. ALDACTONE [Concomitant]
  4. XIPAMIDE [Concomitant]
  5. CALCITRIOL [Concomitant]
  6. OXYGEN [Concomitant]
  7. EMBOLEX [Concomitant]
  8. RIOCIGUAT [Concomitant]
  9. TRACLEER [Suspect]
     Dosage: 125 MG, BID
     Route: 048
     Dates: start: 20101229, end: 20110119
  10. TORSEMIDE [Concomitant]
  11. MAGNESIUM VERLA [Concomitant]
  12. SODIUM CHLORIDE [Concomitant]
  13. TRACLEER [Suspect]
     Indication: PULMONARY ARTERIAL HYPERTENSION
     Dosage: 62.5 MG, BID
     Route: 048
     Dates: start: 20101218, end: 20101201
  14. VENTAVIS [Concomitant]
     Indication: PULMONARY ARTERIAL HYPERTENSION
  15. KALINOR [Concomitant]
  16. OXAZEPAM [Concomitant]

REACTIONS (9)
  - PAIN IN EXTREMITY [None]
  - LUNG DISORDER [None]
  - RIGHT VENTRICULAR FAILURE [None]
  - PAIN [None]
  - FLUID OVERLOAD [None]
  - SYNCOPE [None]
  - INCORRECT DOSE ADMINISTERED [None]
  - CHEST DISCOMFORT [None]
  - RENAL IMPAIRMENT [None]
